FAERS Safety Report 4588291-8 (Version None)
Quarter: 2005Q1

REPORT INFORMATION
  Report Type: 
  Country: None (occurrence: None)
  Receive Date: 20050222
  Receipt Date: 20050209
  Transmission Date: 20050727
  Serious: Yes (Other)
  Sender: FDA-Public Use
  Company Number: US-JNJFOC-20040809441

PATIENT
  Sex: Female
  Weight: 79.38 kg

DRUGS (2)
  1. REMICADE [Suspect]
     Indication: CROHN'S DISEASE
     Route: 042
  2. REMICADE [Suspect]
     Dosage: 8 INFUSIONS TOTAL
     Route: 042

REACTIONS (7)
  - ABDOMINAL PAIN UPPER [None]
  - ANTINUCLEAR ANTIBODY POSITIVE [None]
  - BACK PAIN [None]
  - EATING DISORDER [None]
  - LUPUS-LIKE SYNDROME [None]
  - SKIN ULCER [None]
  - THERAPEUTIC RESPONSE DECREASED [None]
